FAERS Safety Report 24692661 (Version 1)
Quarter: 2024Q4

REPORT INFORMATION
  Report Type: Spontaneous
  Country: US (occurrence: US)
  Receive Date: 20241203
  Receipt Date: 20241203
  Transmission Date: 20250115
  Serious: No
  Sender: SEPTODONT
  Company Number: US-SEPTODONT-2023018122

PATIENT
  Sex: Male

DRUGS (1)
  1. LIDOCAINE [Suspect]
     Active Substance: LIDOCAINE
     Indication: Dental local anaesthesia
     Route: 004
     Dates: start: 20231016

REACTIONS (4)
  - Product container seal issue [Unknown]
  - Product sterility issue [Unknown]
  - Product leakage [Unknown]
  - Drug ineffective [Unknown]
